FAERS Safety Report 7802993-9 (Version None)
Quarter: 2011Q4

REPORT INFORMATION
  Report Type: 
  Country: None (occurrence: None)
  Receive Date: 20111007
  Receipt Date: 20110929
  Transmission Date: 20120403
  Serious: Yes (Hospitalization)
  Sender: FDA-Public Use
  Company Number: FI-BRISTOL-MYERS SQUIBB COMPANY-15631740

PATIENT
  Age: 21 Year
  Sex: Male

DRUGS (2)
  1. ABILIFY [Suspect]
     Indication: SCHIZOPHRENIA
     Dosage: THERAY START:8JAN11,10MG.DOSE INCRE:15SEP:15MG,16SEP22:30MG,DOSE DECREASED:17MAR11:15MG ONCE DAILY.
     Route: 048
     Dates: start: 20110108
  2. CLOZAPINE [Concomitant]
     Dates: start: 20100101

REACTIONS (4)
  - LIBIDO DISORDER [None]
  - HALLUCINATION [None]
  - DIARRHOEA [None]
  - PSYCHOTIC DISORDER [None]
